FAERS Safety Report 12706760 (Version 5)
Quarter: 2017Q3

REPORT INFORMATION
  Report Type: Report from Study
  Country: CA (occurrence: CA)
  Receive Date: 20160901
  Receipt Date: 20170719
  Transmission Date: 20171127
  Serious: Yes (Hospitalization)
  Sender: FDA-Public Use
  Company Number: CA-JNJFOC-20160823215

PATIENT
  Age: 67 Year
  Sex: Female
  Weight: 81.65 kg

DRUGS (2)
  1. STELARA [Suspect]
     Active Substance: USTEKINUMAB
     Indication: PSORIASIS
     Route: 058
     Dates: end: 20170609
  2. STELARA [Suspect]
     Active Substance: USTEKINUMAB
     Indication: PSORIASIS
     Route: 058
     Dates: start: 20130823, end: 20161111

REACTIONS (5)
  - Breast cancer [Unknown]
  - Off label use [Unknown]
  - Cerebrovascular accident [Recovering/Resolving]
  - Product use issue [Unknown]
  - Benign breast neoplasm [Unknown]

NARRATIVE: CASE EVENT DATE: 20130823
